FAERS Safety Report 24696777 (Version 6)
Quarter: 2025Q1

REPORT INFORMATION
  Report Type: Spontaneous
  Country: US (occurrence: US)
  Receive Date: 20241204
  Receipt Date: 20250328
  Transmission Date: 20250408
  Serious: Yes (Hospitalization, Other)
  Sender: SANOFI AVENTIS
  Company Number: US-SA-2024SA357218

PATIENT
  Age: 72 Year
  Sex: Male
  Weight: 115.91 kg

DRUGS (21)
  1. DUPIXENT [Suspect]
     Active Substance: DUPILUMAB
     Indication: Asthma
     Dosage: 300 MG, QOW
     Route: 058
     Dates: start: 20241107
  2. SOLU-MEDROL [Concomitant]
     Active Substance: METHYLPREDNISOLONE SODIUM SUCCINATE
  3. OXYBUTYNIN CHLORIDE [Concomitant]
     Active Substance: OXYBUTYNIN CHLORIDE
  4. AMPICILLIN TRIHYDRATE\CLAVULANATE POTASSIUM [Concomitant]
     Active Substance: AMPICILLIN TRIHYDRATE\CLAVULANATE POTASSIUM
  5. LEVOTHYROXINE SODIUM [Concomitant]
     Active Substance: LEVOTHYROXINE SODIUM
  6. LINEZOLID [Concomitant]
     Active Substance: LINEZOLID
  7. BUDESONIDE [Concomitant]
     Active Substance: BUDESONIDE
  8. METOPROLOL TARTRATE [Concomitant]
     Active Substance: METOPROLOL TARTRATE
  9. TRAZODONE [Concomitant]
     Active Substance: TRAZODONE HYDROCHLORIDE
  10. PREDNISONE [Concomitant]
     Active Substance: PREDNISONE
  11. ARFORMOTEROL TARTRATE [Concomitant]
     Active Substance: ARFORMOTEROL TARTRATE
  12. ELIQUIS [Concomitant]
     Active Substance: APIXABAN
  13. CEPHALEXIN [Concomitant]
     Active Substance: CEPHALEXIN
  14. ALLOPURINOL [Concomitant]
     Active Substance: ALLOPURINOL
  15. TAMSULOSIN HYDROCHLORIDE [Concomitant]
     Active Substance: TAMSULOSIN HYDROCHLORIDE
  16. ACETAMINOPHEN [Concomitant]
     Active Substance: ACETAMINOPHEN
  17. LEVALBUTEROL HYDROCHLORIDE [Concomitant]
     Active Substance: LEVALBUTEROL HYDROCHLORIDE
  18. ALBUTEROL SULFATE [Concomitant]
     Active Substance: ALBUTEROL SULFATE
  19. BREZTRI [Concomitant]
     Active Substance: BUDESONIDE\FORMOTEROL\GLYCOPYRROLATE
  20. BUSPIRONE HCL [Concomitant]
     Active Substance: BUSPIRONE HYDROCHLORIDE
  21. BENZONATATE [Concomitant]
     Active Substance: BENZONATATE

REACTIONS (8)
  - Cellulitis [Recovered/Resolved]
  - Atrial fibrillation [Unknown]
  - Cough [Unknown]
  - Aortic valve disease [Unknown]
  - Hospitalisation [Unknown]
  - Limb injury [Unknown]
  - Fatigue [Unknown]
  - Illness [Unknown]

NARRATIVE: CASE EVENT DATE: 20240101
